FAERS Safety Report 5629934-7 (Version None)
Quarter: 2008Q1

REPORT INFORMATION
  Report Type: 
  Country: None (occurrence: None)
  Receive Date: 20080218
  Receipt Date: 20080204
  Transmission Date: 20080703
  Serious: Yes (Death)
  Sender: FDA-Public Use
  Company Number: DE-ROCHE-545351

PATIENT
  Age: 70 Year
  Sex: Female

DRUGS (59)
  1. CEFTRIAXONE [Suspect]
     Indication: INFECTION
     Dosage: INDICATION: OBSCURE INFECTION
     Route: 042
     Dates: start: 20050322, end: 20050325
  2. PHYTOMENADIONE [Suspect]
     Dosage: REGIMEN REPORTED AS 5-0-0 10-0-0
     Route: 048
     Dates: start: 20050309, end: 20050310
  3. PHYTOMENADIONE [Suspect]
     Dosage: REGIMEN REPORTED AS 5-0-0 10-0-0
     Route: 048
     Dates: start: 20050314, end: 20050316
  4. GLIBENCLAMIDE [Suspect]
     Indication: DIABETES MELLITUS
     Dosage: REGIMEN REPORTED AS 3.5 MG 1/2-0-0
     Route: 048
     Dates: start: 20050305, end: 20050331
  5. PANTOZOL [Suspect]
     Indication: PROPHYLAXIS
     Route: 048
     Dates: start: 20050301, end: 20050317
  6. PANTOZOL [Suspect]
     Route: 042
     Dates: start: 20050318, end: 20050331
  7. AMITRIPTYLINE HCL [Suspect]
     Indication: DEPRESSION
     Dosage: REGIMEN: 50 MG 0-0-1 0-0-1/2
     Route: 048
     Dates: start: 20040930
  8. AMITRIPTYLINE HCL [Suspect]
     Dosage: REGIMEN: 50 MG 0-0-1 0-0-1/2
     Route: 048
     Dates: start: 20050303, end: 20050318
  9. CLEXANE [Suspect]
     Indication: THROMBOSIS PROPHYLAXIS
     Route: 058
     Dates: start: 20050222
  10. CLEXANE [Suspect]
     Route: 058
     Dates: start: 20050303, end: 20050307
  11. CLEXANE [Suspect]
     Route: 058
     Dates: start: 20050315, end: 20050331
  12. MYOCHOLINE [Suspect]
     Indication: URINARY INCONTINENCE
     Route: 048
     Dates: start: 20050210
  13. MYOCHOLINE [Suspect]
     Route: 048
     Dates: start: 20050303, end: 20050331
  14. BENURON [Suspect]
     Dosage: REGIMEN: 1 GRAM 1-0-1 0-0-1
     Route: 065
     Dates: start: 20050305, end: 20050305
  15. BENURON [Suspect]
     Dosage: REGIMEN: 1 GRAM 1-0-1 0-0-1
     Route: 065
     Dates: start: 20050319, end: 20050319
  16. BENURON [Suspect]
     Dosage: REGIMEN: 500 MG 1-0-0 0-1-0
     Route: 048
     Dates: start: 20050307, end: 20050307
  17. BENURON [Suspect]
     Dosage: REGIMEN: 500 MG 1-0-0 0-1-0
     Route: 048
     Dates: start: 20050315, end: 20050315
  18. EUSAPRIM [Suspect]
     Indication: INFECTION
     Route: 048
     Dates: start: 20050307, end: 20050314
  19. RIOPAN [Suspect]
     Dosage: REGIMEN: 1-0-0 0-0-1 1-1-1
     Route: 048
     Dates: start: 20050307, end: 20050307
  20. RIOPAN [Suspect]
     Dosage: REGIMEN: 1-0-0 0-0-1 1-1-1
     Route: 048
     Dates: start: 20050309, end: 20050331
  21. IMODIUM [Suspect]
     Indication: DIARRHOEA
     Dosage: REGIMEN REPORTED AS 0-2-0
     Route: 048
     Dates: start: 20050308, end: 20050308
  22. IMODIUM [Suspect]
     Dosage: REGIMEN REPORTED AS 0-2-0
     Route: 048
     Dates: start: 20050315, end: 20050315
  23. IMODIUM [Suspect]
     Dosage: REGIMEN REPORTED AS 0-2-0
     Route: 048
     Dates: start: 20050325, end: 20050326
  24. NOVALGIN [Suspect]
     Indication: PAIN
     Dosage: REGIMEN: 4 X 20
     Route: 048
     Dates: start: 20050309, end: 20050314
  25. PASPERTIN [Suspect]
     Indication: NAUSEA
     Dosage: REGIMEN: 3 X 20
     Route: 048
     Dates: start: 20050310, end: 20050318
  26. PASPERTIN [Suspect]
     Route: 042
     Dates: start: 20050322, end: 20050322
  27. CANDIO-HERMAL [Suspect]
     Route: 050
     Dates: start: 20050317, end: 20050317
  28. CANDIO-HERMAL [Suspect]
     Dosage: IRREGULAR DOSE
     Route: 050
     Dates: start: 20050318, end: 20050331
  29. CANDIO-HERMAL [Suspect]
     Route: 050
     Dates: start: 20050326, end: 20050326
  30. SODIUM CHLORIDE [Suspect]
     Dosage: INDICATION: CARRIER SOLUTION, FORM: INFUSION. REGIMEN: 500 ML/DIV
     Route: 042
     Dates: start: 20050318, end: 20050331
  31. ELECTROLYTES [Suspect]
     Dosage: FORM: INFUSION. REGIMEN: 500 ML-150 ML
     Route: 042
     Dates: start: 20050318, end: 20050324
  32. ELECTROLYTES [Suspect]
     Dosage: FORM: INFUSION. REGIMEN: 500 ML-150 ML
     Route: 042
     Dates: start: 20050329, end: 20050331
  33. MULTI-VITAMIN [Suspect]
     Route: 042
     Dates: start: 20050322, end: 20050322
  34. URBASON [Suspect]
     Indication: COLLAGEN DISORDER
     Dosage: REGIMEN REPORTED AS 250 MG 96 MG
     Route: 042
     Dates: start: 20050322, end: 20050329
  35. URBASON [Suspect]
     Dosage: REGIMEN REPORTED AS 250 MG 96 MG
     Route: 042
     Dates: start: 20050331, end: 20050331
  36. MANINIL [Concomitant]
     Indication: DIABETES MELLITUS
     Dosage: REGIMEN REPORTED AS 3.5 MG 1/2-0-0
     Route: 048
     Dates: start: 20050211
  37. MANINIL [Concomitant]
     Dosage: REGIMEN REPORTED AS 3.5 MG 1/2-0-0
     Route: 048
     Dates: start: 20050303, end: 20050303
  38. SORTIS [Concomitant]
     Route: 048
     Dates: start: 20040930
  39. SORTIS [Concomitant]
     Route: 048
     Dates: start: 20050303, end: 20050303
  40. VOLTAREN [Concomitant]
     Indication: PAIN
     Route: 048
     Dates: start: 20050214
  41. VOLTAREN [Concomitant]
     Route: 048
     Dates: start: 20050303, end: 20050309
  42. HAES [Concomitant]
     Dosage: FORM: INFUSION, 500 ML 200ML
     Route: 042
     Dates: start: 20050304, end: 20050305
  43. MARCUMAR [Concomitant]
     Indication: THROMBOSIS
     Route: 048
     Dates: start: 20050305, end: 20050308
  44. CALCIUM SANDOZ [Concomitant]
     Dosage: REGIMEN: 2-0-0 1-0-1
     Route: 048
     Dates: start: 20050308, end: 20050309
  45. CALCIUM SANDOZ [Concomitant]
     Dosage: REGIMEN: 2-0-0 1-0-1
     Route: 048
     Dates: start: 20050324, end: 20050331
  46. XYLIT [Concomitant]
     Route: 042
     Dates: start: 20050323, end: 20050323
  47. CALCIUM GLUCONATE [Concomitant]
     Route: 042
     Dates: start: 20050323, end: 20050323
  48. 1 CONCOMITANT DRUG [Concomitant]
     Dosage: DRUG: AQUA AD, INDICATION: CARRIER SOLUTION
     Route: 042
     Dates: start: 20050323, end: 20050323
  49. TPN [Concomitant]
     Route: 042
     Dates: start: 20050323, end: 20050324
  50. TPN [Concomitant]
     Route: 042
     Dates: start: 20050331, end: 20050331
  51. ACTRAPID [Concomitant]
     Indication: DIABETES MELLITUS
     Route: 058
     Dates: start: 20050324, end: 20050329
  52. THIOCTACID [Concomitant]
     Indication: POLYNEUROPATHY
     Route: 042
     Dates: start: 20050325, end: 20050327
  53. CORANGIN [Concomitant]
     Indication: DYSPNOEA
     Dosage: REGIMEN: 1 HUB
     Route: 055
     Dates: start: 20050327, end: 20050327
  54. FENISTIL [Concomitant]
     Indication: SKIN DISORDER
     Dosage: REGIMEN: 0-0-2 1-1-1
     Route: 048
     Dates: start: 20050327, end: 20050329
  55. FENISTIL [Concomitant]
     Route: 042
     Dates: start: 20050328, end: 20050328
  56. XUSAL [Concomitant]
     Indication: PRURITUS
     Dosage: REGIMEN: 0-0-1 1-0-1
     Route: 048
     Dates: start: 20050329, end: 20050331
  57. DECORTIN [Concomitant]
     Indication: SKIN DISORDER
     Route: 048
     Dates: start: 20050330, end: 20050331
  58. NOVALGIN [Concomitant]
     Route: 042
     Dates: start: 20050331, end: 20050331
  59. AVELOX [Concomitant]
     Indication: YERSINIA INFECTION
     Route: 042
     Dates: start: 20050331, end: 20050331

REACTIONS (2)
  - STEVENS-JOHNSON SYNDROME [None]
  - TOXIC EPIDERMAL NECROLYSIS [None]
